FAERS Safety Report 12256203 (Version 2)
Quarter: 2016Q2

REPORT INFORMATION
  Report Type: Spontaneous
  Country: US (occurrence: US)
  Receive Date: 20160412
  Receipt Date: 20160422
  Transmission Date: 20160815
  Serious: Yes (Other)
  Sender: FDA-Public Use
  Company Number: US-ROCHE-1739927

PATIENT
  Age: 73 Year
  Sex: Male

DRUGS (3)
  1. XOLAIR [Suspect]
     Active Substance: OMALIZUMAB
     Route: 058
  2. XOLAIR [Suspect]
     Active Substance: OMALIZUMAB
     Indication: CHRONIC SPONTANEOUS URTICARIA
     Route: 058
     Dates: start: 201601
  3. XOLAIR [Suspect]
     Active Substance: OMALIZUMAB
     Dosage: 3RD DOSE
     Route: 058
     Dates: start: 20160407

REACTIONS (1)
  - Monocytosis [Unknown]

NARRATIVE: CASE EVENT DATE: 20160405
